FAERS Safety Report 18213175 (Version 1)
Quarter: 2020Q3

REPORT INFORMATION
  Report Type: Spontaneous
  Country: US (occurrence: US)
  Receive Date: 20200830
  Receipt Date: 20200830
  Transmission Date: 20201103
  Serious: No
  Sender: FDA-Public Use
  Company Number: None

PATIENT
  Age: 30 Year
  Sex: Female

DRUGS (2)
  1. TECFIDERA [Suspect]
     Active Substance: DIMETHYL FUMARATE
     Indication: CHRONIC HEPATITIS C
  2. TECFIDERA [Suspect]
     Active Substance: DIMETHYL FUMARATE
     Indication: MULTIPLE SCLEROSIS
     Route: 048
     Dates: start: 20200605

REACTIONS (6)
  - Vomiting [None]
  - International normalised ratio abnormal [None]
  - Yellow skin [None]
  - Weight decreased [None]
  - Chromaturia [None]
  - Contusion [None]

NARRATIVE: CASE EVENT DATE: 202006
